FAERS Safety Report 5670503-0 (Version None)
Quarter: 2008Q1

REPORT INFORMATION
  Report Type: 
  Country: None (occurrence: None)
  Receive Date: 20080318
  Receipt Date: 20080307
  Transmission Date: 20080703
  Serious: No
  Sender: FDA-Public Use
  Company Number: PHRM2008FR01041

PATIENT
  Sex: Female

DRUGS (1)
  1. ACLASTA [Suspect]
     Indication: OSTEITIS DEFORMANS
     Route: 042

REACTIONS (2)
  - HYPOCALCAEMIA [None]
  - MYALGIA [None]
